FAERS Safety Report 15590689 (Version 1)
Quarter: 2018Q4

REPORT INFORMATION
  Report Type: Spontaneous
  Country: BE (occurrence: BE)
  Receive Date: 20181106
  Receipt Date: 20181106
  Transmission Date: 20190205
  Serious: Yes (Hospitalization)
  Sender: FDA-Public Use
  Company Number: PHHY2018BE142054

PATIENT
  Age: 51 Year
  Sex: Male

DRUGS (4)
  1. INTERFERON ALFA-2A [Concomitant]
     Active Substance: INTERFERON ALFA-2A
     Indication: XANTHOGRANULOMA
     Dosage: UNK
     Route: 065
  2. METHYLPREDNISOLONE. [Suspect]
     Active Substance: METHYLPREDNISOLONE
     Indication: XANTHOGRANULOMA
     Dosage: 64 MG, UNK
     Route: 065
  3. HIDROXIUREA [Concomitant]
     Active Substance: HYDROXYUREA
     Indication: MYELODYSPLASTIC SYNDROME
     Dosage: UNK
     Route: 065
  4. METHYLPREDNISOLONE. [Suspect]
     Active Substance: METHYLPREDNISOLONE
     Indication: MYELODYSPLASTIC SYNDROME

REACTIONS (4)
  - Anxiety [Unknown]
  - Cushingoid [Unknown]
  - Depression [Unknown]
  - Headache [Unknown]
